FAERS Safety Report 18115459 (Version 1)
Quarter: 2020Q3

REPORT INFORMATION
  Report Type: Spontaneous
  Country: PL (occurrence: PL)
  Receive Date: 20200805
  Receipt Date: 20200805
  Transmission Date: 20201103
  Serious: Yes (Hospitalization, Other)
  Sender: FDA-Public Use
  Company Number: PL-BAYER-2020-153679

PATIENT
  Age: 59 Year

DRUGS (1)
  1. NEXAVAR [Suspect]
     Active Substance: SORAFENIB
     Indication: HEPATOCELLULAR CARCINOMA
     Dosage: UNK
     Dates: start: 20181003, end: 20200102

REACTIONS (5)
  - Asthenia [None]
  - Jaundice [None]
  - Ascites [None]
  - Hepatocellular carcinoma [None]
  - Blood bilirubin increased [None]

NARRATIVE: CASE EVENT DATE: 20200130
